FAERS Safety Report 4454612-X (Version None)
Quarter: 2004Q3

REPORT INFORMATION
  Report Type: 
  Country: None (occurrence: None)
  Receive Date: 20040826
  Receipt Date: 20040116
  Transmission Date: 20050211
  Serious: Yes (Hospitalization)
  Sender: FDA-Public Use
  Company Number: 234230

PATIENT
  Age: 21 Year
  Sex: Male

DRUGS (2)
  1. NOVOLIN N PENFILL (INSULIN HUMAN) SUSPENSION FOR INJECTION, 100IU/ML [Suspect]
     Indication: DIABETES MELLITUS INSULIN-DEPENDENT
     Dosage: 41 IU, QD, SUBCUTANEOUS
     Route: 058
  2. NOVOLIN R [Suspect]
     Indication: DIABETES MELLITUS INSULIN-DEPENDENT
     Dosage: 10 IU, QD, SUBCUTANEOUS
     Route: 058

REACTIONS (2)
  - BLOOD GLUCOSE INCREASED [None]
  - DIABETIC KETOACIDOSIS [None]
